FAERS Safety Report 8186950-1 (Version None)
Quarter: 2012Q1

REPORT INFORMATION
  Report Type: 
  Country: None (occurrence: None)
  Receive Date: 20120306
  Receipt Date: 20120227
  Transmission Date: 20120608
  Serious: Yes (Other)
  Sender: FDA-Public Use
  Company Number: US-BAYER-2012-005894

PATIENT
  Age: 42 Year
  Sex: Female
  Weight: 126.98 kg

DRUGS (1)
  1. MIRENA [Suspect]
     Indication: DYSFUNCTIONAL UTERINE BLEEDING
     Dosage: 20 MCG/24HR, CONT
     Route: 015
     Dates: start: 20110727, end: 20120125

REACTIONS (2)
  - GENITAL HAEMORRHAGE [None]
  - DEVICE DISLOCATION [None]
